FAERS Safety Report 8559316-X (Version None)
Quarter: 2012Q3

REPORT INFORMATION
  Report Type: 
  Country: None (occurrence: None)
  Receive Date: 20120802
  Receipt Date: 20120730
  Transmission Date: 20120928
  Serious: Yes (Life-Threatening)
  Sender: FDA-Public Use
  Company Number: PHHY2012NL066197

PATIENT
  Sex: Male

DRUGS (3)
  1. ZOMETA [Suspect]
     Dosage: 4 MG/100 ML ONCE PER 84 DAYS
     Dates: start: 20120730
  2. ZOMETA [Suspect]
     Dosage: 4 MG/100 ML ONCE PER 84 DAYS
     Dates: start: 20120514
  3. ZOMETA [Suspect]
     Indication: PROSTATE CANCER METASTATIC
     Dosage: 4 MG/100 ML ONCE PER 84 DAYS
     Dates: start: 20120229

REACTIONS (4)
  - NEOPLASM MALIGNANT [None]
  - BILIARY TRACT DISORDER [None]
  - MUSCULAR WEAKNESS [None]
  - LIVER DISORDER [None]
